FAERS Safety Report 25782465 (Version 1)
Quarter: 2025Q3

REPORT INFORMATION
  Report Type: Spontaneous
  Country: CN (occurrence: CN)
  Receive Date: 20250909
  Receipt Date: 20250909
  Transmission Date: 20251020
  Serious: Yes (Life-Threatening, Hospitalization)
  Sender: DIZAL (JIANGSU) PHARMACEUTICAL CO., LTD.
  Company Number: CN-Dizal (Jiangsu) Pharmaceutical Co., Ltd.-2184177

PATIENT
  Age: 75 Year
  Sex: Male
  Weight: 48 kg

DRUGS (2)
  1. SUNVOZERTINIB [Suspect]
     Active Substance: SUNVOZERTINIB
     Indication: Lung neoplasm malignant
     Dates: start: 20250728, end: 20250827
  2. SUNVOZERTINIB [Suspect]
     Active Substance: SUNVOZERTINIB
     Indication: Metastases to central nervous system

REACTIONS (3)
  - Diarrhoea [Recovered/Resolved]
  - Physical deconditioning [Recovering/Resolving]
  - Decreased appetite [Recovering/Resolving]

NARRATIVE: CASE EVENT DATE: 20250814
